FAERS Safety Report 8861073 (Version 1)
Quarter: 2012Q4

REPORT INFORMATION
  Report Type: Spontaneous
  Country: IN (occurrence: None)
  Receive Date: 20121023
  Receipt Date: 20121023
  Transmission Date: 20130627
  Serious: Yes (Hospitalization)
  Sender: FDA-Public Use
  Company Number: FK201203135

PATIENT
  Age: 6 Decade
  Sex: Male

DRUGS (3)
  1. PACLITAXEL [Suspect]
     Indication: OESOPHAGEAL CARCINOMA
  2. IFOSFAMIDE [Suspect]
     Indication: OESOPHAGEAL CARCINOMA
  3. CISPLATIN (MANUFACTURER UNKNOWN) (CISPLATIN) (CISPLATIN) [Concomitant]
     Indication: OESOPHAGEAL CARCINOMA

REACTIONS (1)
  - Tracheo-oesophageal fistula [None]
